FAERS Safety Report 7459594-4 (Version None)
Quarter: 2011Q2

REPORT INFORMATION
  Report Type: 
  Country: None (occurrence: None)
  Receive Date: 20110505
  Receipt Date: 20110421
  Transmission Date: 20111010
  Serious: Yes (Other)
  Sender: FDA-Public Use
  Company Number: US-JNJFOC-20110409787

PATIENT
  Sex: Female
  Weight: 58.51 kg

DRUGS (1)
  1. REMICADE [Suspect]
     Indication: COLITIS ULCERATIVE
     Route: 042

REACTIONS (4)
  - VOMITING [None]
  - ABDOMINAL PAIN UPPER [None]
  - ERUCTATION [None]
  - DEPRESSION [None]
